FAERS Safety Report 10929489 (Version 1)
Quarter: 2015Q1

REPORT INFORMATION
  Report Type: Spontaneous
  Country: US (occurrence: None)
  Receive Date: 20150318
  Receipt Date: 20150318
  Transmission Date: 20150721
  Serious: No
  Sender: FDA-Public Use
  Company Number: None

PATIENT
  Age: 61 Year
  Sex: Female
  Weight: 54.43 kg

DRUGS (3)
  1. WELLBUTRIN [Concomitant]
     Active Substance: BUPROPION HYDROCHLORIDE
  2. KEFLEX [Suspect]
     Active Substance: CEPHALEXIN
     Indication: INFECTION
     Dosage: 28 6 PILLS A DAY
     Route: 048
  3. COENZYME Q10 [Concomitant]
     Active Substance: UBIDECARENONE

REACTIONS (3)
  - Haematochezia [None]
  - Fatigue [None]
  - Diarrhoea [None]

NARRATIVE: CASE EVENT DATE: 20150316
